FAERS Safety Report 18850584 (Version 2)
Quarter: 2021Q1

REPORT INFORMATION
  Report Type: Spontaneous
  Country: JP (occurrence: JP)
  Receive Date: 20210205
  Receipt Date: 20210304
  Transmission Date: 20210420
  Serious: Yes (Death, Hospitalization, Other)
  Sender: FDA-Public Use
  Company Number: JP-EXELIXIS-CABO-21037192

PATIENT
  Age: 44 Year
  Sex: Male
  Weight: 97.4 kg

DRUGS (6)
  1. THYRADIN S [Concomitant]
     Active Substance: LEVOTHYROXINE SODIUM
     Indication: HYPOTHYROIDISM
     Dosage: 200 MG, QD
     Route: 048
     Dates: end: 20210104
  2. CABOMETYX [Suspect]
     Active Substance: CABOZANTINIB S-MALATE
     Dosage: 60 MG, QD
     Route: 048
     Dates: start: 20200825, end: 20200917
  3. NEXIUM [Concomitant]
     Active Substance: ESOMEPRAZOLE MAGNESIUM
     Indication: PROPHYLAXIS
     Dosage: 20 MILLIGRAM, QD
     Route: 048
     Dates: end: 20210104
  4. CABOMETYX [Suspect]
     Active Substance: CABOZANTINIB S-MALATE
     Indication: RENAL CANCER METASTATIC
     Dosage: 20 MG, QD
     Route: 048
     Dates: start: 20200622
  5. CABOMETYX [Suspect]
     Active Substance: CABOZANTINIB S-MALATE
     Dosage: 40 MG, QD
     Route: 048
     Dates: start: 20200630, end: 20200824
  6. CABOMETYX [Suspect]
     Active Substance: CABOZANTINIB S-MALATE
     Dosage: 40 MG, QD
     Route: 048
     Dates: start: 20200918, end: 20210104

REACTIONS (7)
  - Hypotension [Unknown]
  - Disease progression [Fatal]
  - Intentional product use issue [Unknown]
  - Malaise [Unknown]
  - Headache [Fatal]
  - Mobility decreased [Fatal]
  - Renal cancer metastatic [Fatal]

NARRATIVE: CASE EVENT DATE: 20200623
